FAERS Safety Report 6446516-8 (Version None)
Quarter: 2009Q4

REPORT INFORMATION
  Report Type: 
  Country: None (occurrence: None)
  Receive Date: 20091110
  Receipt Date: 20090918
  Transmission Date: 20100525
  Serious: Yes (Death)
  Sender: FDA-Public Use
  Company Number: 1000008981

PATIENT
  Age: 55 Year
  Sex: Female
  Weight: 112.9457 kg

DRUGS (13)
  1. SAVELLA [Suspect]
     Indication: FIBROMYALGIA
     Dosage: 12.5 MG (12.5 MG, 1 IN 1 D),
     Dates: start: 20090801, end: 20090801
  2. HYDROCODONE [Concomitant]
  3. ELAVIL [Concomitant]
  4. MULTI-VITAMIN [Concomitant]
  5. KLONOPIN [Concomitant]
  6. ZOCOR [Concomitant]
  7. INDERAL [Concomitant]
  8. LASIX [Concomitant]
  9. DILTIAZEM [Concomitant]
  10. ASPIRIN [Concomitant]
  11. ZOLOFT [Concomitant]
  12. POTASSIUM [Concomitant]
  13. ZANTAC [Concomitant]

REACTIONS (2)
  - HOT FLUSH [None]
  - SUDDEN DEATH [None]
